FAERS Safety Report 7622492-7 (Version None)
Quarter: 2011Q3

REPORT INFORMATION
  Report Type: 
  Country: None (occurrence: None)
  Receive Date: 20110719
  Receipt Date: 20110719
  Transmission Date: 20111222
  Serious: Yes (Other)
  Sender: FDA-Public Use
  Company Number: None

PATIENT
  Age: 64 Year
  Sex: Female

DRUGS (5)
  1. VERAPAMIL [Concomitant]
  2. TRIAMTERENE AND HYDROCHLOROTHIAZIDE [Concomitant]
  3. ZOLPIDEM [Concomitant]
  4. ATENOLOL [Concomitant]
  5. DIOVAN [Suspect]
     Indication: HYPERTENSION
     Dosage: 1 TABLET BY MOUTH DAILY
     Route: 048
     Dates: start: 20110621, end: 20110623

REACTIONS (3)
  - VOMITING [None]
  - URINARY INCONTINENCE [None]
  - SYNCOPE [None]
